FAERS Safety Report 14660570 (Version 1)
Quarter: 2018Q1

REPORT INFORMATION
  Report Type: Spontaneous
  Country: US (occurrence: US)
  Receive Date: 20180320
  Receipt Date: 20180320
  Transmission Date: 20180509
  Serious: No
  Sender: FDA-Public Use
  Company Number: US-ASTRAZENECA-2018SE22912

PATIENT
  Age: 65 Year
  Sex: Male
  Weight: 88.5 kg

DRUGS (5)
  1. CRESTOR [Suspect]
     Active Substance: ROSUVASTATIN CALCIUM
     Indication: BLOOD CHOLESTEROL INCREASED
     Dosage: GENERIC
     Route: 048
     Dates: start: 201607, end: 2017
  2. OTC PROBIOTIC [Concomitant]
     Indication: ERUCTATION
     Route: 048
     Dates: start: 201706
  3. OTC PROBIOTIC [Concomitant]
     Indication: ABDOMINAL DISCOMFORT
     Route: 048
     Dates: start: 201706
  4. OTC PROBIOTIC [Concomitant]
     Indication: ERUCTATION
     Route: 048
     Dates: start: 201706
  5. CRESTOR [Suspect]
     Active Substance: ROSUVASTATIN CALCIUM
     Indication: BLOOD CHOLESTEROL INCREASED
     Route: 048
     Dates: start: 2010, end: 201606

REACTIONS (4)
  - Rash [Recovering/Resolving]
  - Adverse event [Recovering/Resolving]
  - Pruritus [Recovering/Resolving]
  - Abdominal discomfort [Recovering/Resolving]

NARRATIVE: CASE EVENT DATE: 2016
